FAERS Safety Report 15426786 (Version 1)
Quarter: 2018Q3

REPORT INFORMATION
  Report Type: Spontaneous
  Country: US (occurrence: US)
  Receive Date: 20180925
  Receipt Date: 20180925
  Transmission Date: 20181010
  Serious: No
  Sender: FDA-Public Use
  Company Number: US-INDIVIOR LIMITED-INDV-106958-2017

PATIENT

DRUGS (2)
  1. SUBOXONE [Suspect]
     Active Substance: BUPRENORPHINE HYDROCHLORIDE\NALOXONE HYDROCHLORIDE
     Indication: PRODUCT USED FOR UNKNOWN INDICATION
     Dosage: ONE 12 MG AT MORNING ONE AT NIGHT
     Route: 060
     Dates: start: 201704
  2. SUBOXONE [Suspect]
     Active Substance: BUPRENORPHINE HYDROCHLORIDE\NALOXONE HYDROCHLORIDE
     Indication: PRODUCT USED FOR UNKNOWN INDICATION
     Dosage: ONE 8 MG FILM AT MORNING AND ONE AT NIGHT
     Route: 060
     Dates: start: 201704

REACTIONS (4)
  - Prescribed overdose [Unknown]
  - Product use issue [Unknown]
  - Application site pain [Unknown]
  - Application site burn [Unknown]

NARRATIVE: CASE EVENT DATE: 2017
